FAERS Safety Report 4296693-2 (Version None)
Quarter: 2004Q1

REPORT INFORMATION
  Report Type: 
  Country: None (occurrence: None)
  Receive Date: 20040217
  Receipt Date: 20020222
  Transmission Date: 20041129
  Serious: Yes (Disabling, Other)
  Sender: FDA-Public Use
  Company Number: WAES 0202USA02375

PATIENT
  Age: 40 Year
  Sex: Female
  Weight: 73 kg

DRUGS (3)
  1. [THERAPY UNSPECIFIED] [Concomitant]
  2. VIOXX [Suspect]
     Indication: TOOTHACHE
     Route: 048
     Dates: start: 20010515, end: 20010521
  3. VIOXX [Suspect]
     Indication: POST PROCEDURAL PAIN
     Route: 048
     Dates: start: 20010515, end: 20010521

REACTIONS (12)
  - ANTIPHOSPHOLIPID SYNDROME [None]
  - BLOOD CHOLESTEROL INCREASED [None]
  - CEREBROVASCULAR ACCIDENT [None]
  - CHRONIC FATIGUE SYNDROME [None]
  - COLONIC POLYP [None]
  - DYSPEPSIA [None]
  - EMOTIONAL DISTRESS [None]
  - GALLBLADDER DISORDER [None]
  - INJURY [None]
  - OVARIAN CYST [None]
  - TRANSIENT ISCHAEMIC ATTACK [None]
  - UTERINE DISORDER [None]
